FAERS Safety Report 5426838-X (Version None)
Quarter: 2007Q3

REPORT INFORMATION
  Report Type: 
  Country: None (occurrence: None)
  Receive Date: 20070827
  Receipt Date: 20070226
  Transmission Date: 20080115
  Serious: No
  Sender: FDA-Public Use
  Company Number: US-BOEHRINGER INGELHEIM PHARMACEUTICALS, INC.-2006-BP-13481BP

PATIENT
  Sex: Female

DRUGS (12)
  1. CATAPRES-TTS-1 [Suspect]
     Indication: HYPERTENSION
     Route: 061
     Dates: start: 20060301
  2. SYNTHROID [Concomitant]
  3. GLIPIZIDE [Concomitant]
     Indication: DIABETES MELLITUS
  4. ENALAPRIL [Concomitant]
  5. SULAR [Concomitant]
  6. ACTOS [Concomitant]
  7. TOPROL-XL [Concomitant]
  8. LOZOL [Concomitant]
  9. ACIPHEX [Concomitant]
  10. CLARINEX [Concomitant]
  11. ASPIRIN [Concomitant]
  12. FOSAMAX [Concomitant]

REACTIONS (2)
  - APPLICATION SITE DISCOLOURATION [None]
  - APPLICATION SITE PRURITUS [None]
